FAERS Safety Report 8940976 (Version 1)
Quarter: 2012Q4

REPORT INFORMATION
  Report Type: 
  Country: US (occurrence: US)
  Receive Date: 20121203
  Receipt Date: 20121203
  Transmission Date: 20130627
  Serious: No
  Sender: FDA-Public Use
  Company Number: US-VERTEX PHARMACEUTICALS INC.-2012-025312

PATIENT
  Age: 59 Year
  Sex: Female
  Weight: 60 kg

DRUGS (8)
  1. VX-950 (TELAPREVIR) [Suspect]
     Indication: HEPATITIS C
     Dosage: 750 mg, tid
     Route: 048
  2. PEGASYS [Concomitant]
     Dosage: 180 ?g, UNK
  3. RIBAPAK [Concomitant]
     Dosage: 1000 mg, qd
     Route: 048
  4. VITAMIN D /00107901/ [Concomitant]
     Dosage: 1000 ut, UNK
     Route: 048
  5. DEXILANT [Concomitant]
     Dosage: 30 mg, UNK
     Route: 048
  6. MULTIVITAMIN                       /00097801/ [Concomitant]
     Route: 048
  7. HCTZ/TRIAMT [Concomitant]
     Dosage: 25-50 mg
     Route: 048
  8. MILK THISTLE [Concomitant]
     Route: 048

REACTIONS (2)
  - Faeces pale [Unknown]
  - Flatulence [Unknown]
